FAERS Safety Report 8260003-6 (Version None)
Quarter: 2012Q1

REPORT INFORMATION
  Report Type: 
  Country: None (occurrence: None)
  Receive Date: 20120327
  Receipt Date: 20080826
  Transmission Date: 20120608
  Serious: Yes (Hospitalization)
  Sender: FDA-Public Use
  Company Number: PHEH2008US06926

PATIENT
  Age: 77 Year
  Sex: Female

DRUGS (8)
  1. GLEEVEC [Suspect]
     Indication: CHRONIC MYELOID LEUKAEMIA
     Dosage: 400 MG, QD, ORAL
     Route: 048
     Dates: start: 20080508, end: 20080731
  2. METFORMIN HCL [Concomitant]
  3. ASPIRIN [Concomitant]
  4. FUROSEMIDE [Concomitant]
  5. AVAPRO [Concomitant]
  6. SIMVASTATIN [Concomitant]
  7. ATENOLOL [Concomitant]
  8. GLYBURIDE [Concomitant]

REACTIONS (7)
  - NAUSEA [None]
  - BLOOD SODIUM DECREASED [None]
  - OEDEMA PERIPHERAL [None]
  - APPETITE DISORDER [None]
  - DEHYDRATION [None]
  - VOMITING [None]
  - DIARRHOEA [None]
